FAERS Safety Report 6259232-2 (Version None)
Quarter: 2009Q3

REPORT INFORMATION
  Report Type: 
  Country: None (occurrence: None)
  Receive Date: 20090702
  Receipt Date: 20090618
  Transmission Date: 20100115
  Serious: Yes (Other)
  Sender: FDA-Public Use
  Company Number: 8048077

PATIENT
  Sex: Female
  Weight: 7.13 kg

DRUGS (5)
  1. KEPPRA [Suspect]
     Indication: EPILEPSY
     Dosage: 3500 MG TRP
     Route: 064
  2. LAMICTAL [Concomitant]
  3. FOLIC ACID [Concomitant]
  4. VITAMIN TAB [Concomitant]
  5. LEXAPRO [Concomitant]

REACTIONS (3)
  - CHILDHOOD DISINTEGRATIVE DISORDER [None]
  - MATERNAL DRUGS AFFECTING FOETUS [None]
  - MUSCULAR WEAKNESS [None]
